FAERS Safety Report 7371468-6 (Version None)
Quarter: 2011Q1

REPORT INFORMATION
  Report Type: 
  Country: None (occurrence: None)
  Receive Date: 20110324
  Receipt Date: 20110310
  Transmission Date: 20110831
  Serious: Yes (Hospitalization)
  Sender: FDA-Public Use
  Company Number: JP-BRISTOL-MYERS SQUIBB COMPANY-15626138

PATIENT

DRUGS (1)
  1. TAXOL [Suspect]
     Indication: NEOPLASM MALIGNANT

REACTIONS (2)
  - PULMONARY OEDEMA [None]
  - PLEURAL EFFUSION [None]
